FAERS Safety Report 15974156 (Version 1)
Quarter: 2019Q1

REPORT INFORMATION
  Report Type: Spontaneous
  Country: US (occurrence: US)
  Receive Date: 20190218
  Receipt Date: 20190218
  Transmission Date: 20190418
  Serious: No
  Sender: FDA-Public Use
  Company Number: US-ZYDUS-031751

PATIENT
  Sex: Male

DRUGS (1)
  1. METHYLPREDNISOLONE. [Suspect]
     Active Substance: METHYLPREDNISOLONE
     Indication: PRODUCT USED FOR UNKNOWN INDICATION
     Dosage: AS DIRECTED ON PACKAGE
     Route: 048
     Dates: start: 20181205

REACTIONS (1)
  - Product dose omission [Recovered/Resolved]

NARRATIVE: CASE EVENT DATE: 20181206
